FAERS Safety Report 23219775 (Version 2)
Quarter: 2024Q2

REPORT INFORMATION
  Report Type: Spontaneous
  Country: US (occurrence: US)
  Receive Date: 20231122
  Receipt Date: 20240528
  Transmission Date: 20240716
  Serious: No
  Sender: FDA-Public Use
  Company Number: US-AVADEL CNS PHARMACEUTICALS, LLC-2023AVA00056

PATIENT
  Age: 40 Year
  Sex: Male
  Weight: 96.735 kg

DRUGS (11)
  1. LUMRYZ [Suspect]
     Active Substance: SODIUM OXYBATE
     Indication: Narcolepsy
     Dosage: 9 G, AT NIGHT
     Route: 048
     Dates: start: 20230802
  2. LUMRYZ [Suspect]
     Active Substance: SODIUM OXYBATE
     Dosage: 9 G, EACH NIGHT
     Route: 048
     Dates: start: 202308
  3. NYSTATIN AND TRIAMCINOLONE [Concomitant]
     Active Substance: NYSTATIN\TRIAMCINOLONE ACETONIDE
  4. TRIAMCINOLONE ACETONIDE [Concomitant]
     Active Substance: TRIAMCINOLONE ACETONIDE
  5. ALBUTEROL SULFATE [Concomitant]
     Active Substance: ALBUTEROL SULFATE
  6. IBUPROFEN [Concomitant]
     Active Substance: IBUPROFEN
  7. KETOCONAZOLE [Concomitant]
     Active Substance: KETOCONAZOLE
  8. KETOCONAZOLE [Concomitant]
     Active Substance: KETOCONAZOLE
  9. PREGABALIN [Concomitant]
     Active Substance: PREGABALIN
  10. MELOXICAM [Concomitant]
     Active Substance: MELOXICAM
  11. TESTOSTERONE [Concomitant]
     Active Substance: TESTOSTERONE
     Dosage: UNK

REACTIONS (7)
  - Abnormal dreams [Unknown]
  - Fatigue [Unknown]
  - Insomnia [Not Recovered/Not Resolved]
  - Depression [Not Recovered/Not Resolved]
  - Anxiety [Not Recovered/Not Resolved]
  - Unevaluable event [Unknown]
  - Product dose omission issue [Unknown]

NARRATIVE: CASE EVENT DATE: 20230801
